FAERS Safety Report 4361440-2 (Version None)
Quarter: 2004Q2

REPORT INFORMATION
  Report Type: 
  Country: None (occurrence: None)
  Receive Date: 20040519
  Receipt Date: 20040519
  Transmission Date: 20050107
  Serious: Yes (Life-Threatening)
  Sender: FDA-Public Use
  Company Number: None

PATIENT
  Sex: Male
  Weight: 88.5 kg

DRUGS (6)
  1. VECURONIUM BROMIDE [Suspect]
     Indication: INDUCTION OF ANAESTHESIA
     Dosage: 10 MG, X1, IV
     Route: 042
     Dates: start: 20040210
  2. MORPHINE SULFATE [Concomitant]
  3. FENTANYL [Concomitant]
  4. CLINDAMYCIN HCL [Concomitant]
  5. PROPOFOL [Concomitant]
  6. LIDOCAINE [Concomitant]

REACTIONS (7)
  - BRADYCARDIA [None]
  - BRONCHOSPASM [None]
  - ELECTROCARDIOGRAM ST SEGMENT ELEVATION [None]
  - HYPOTENSION [None]
  - LATEX ALLERGY [None]
  - RASH [None]
  - TACHYCARDIA [None]
